FAERS Safety Report 6389920-9 (Version None)
Quarter: 2009Q4

REPORT INFORMATION
  Report Type: 
  Country: None (occurrence: None)
  Receive Date: 20091006
  Receipt Date: 20090414
  Transmission Date: 20100525
  Serious: No
  Sender: FDA-Public Use
  Company Number: US-BRISTOL-MYERS SQUIBB COMPANY-14575500

PATIENT
  Age: 84 Year
  Sex: Female
  Weight: 39 kg

DRUGS (9)
  1. AVAPRO [Suspect]
     Indication: HYPERTENSION
     Route: 048
     Dates: start: 20090209, end: 20090101
  2. ESTRADIOL [Suspect]
  3. LEVOXYL [Suspect]
     Dosage: 1/2 TAB
  4. LANOXIN [Suspect]
  5. VERAPAMIL [Suspect]
  6. TRIAMTERENE AND HYDROCHLOROTHIAZIDE [Suspect]
     Dosage: 1DF=50/75MG
  7. SIMVASTATIN [Suspect]
  8. CLONAZEPAM [Suspect]
     Dosage: 1/2 TAB
  9. PROGESTERONE [Suspect]

REACTIONS (3)
  - CONSTIPATION [None]
  - INSOMNIA [None]
  - NERVOUSNESS [None]
